FAERS Safety Report 25207998 (Version 1)
Quarter: 2025Q2

REPORT INFORMATION
  Report Type: Other
  Country: KR (occurrence: KR)
  Receive Date: 20250417
  Receipt Date: 20250417
  Transmission Date: 20250716
  Serious: Yes (Death, Other)
  Sender: Hibrow Healthcare
  Company Number: KR-Hibrow Healthcare Private Ltd-2175053

PATIENT
  Age: 40 Year
  Sex: Male
  Weight: 64 kg

DRUGS (8)
  1. VALPROIC ACID [Suspect]
     Active Substance: VALPROIC ACID
     Indication: Product used for unknown indication
  2. DIAZEPAM [Suspect]
     Active Substance: DIAZEPAM
  3. ALCOHOL [Suspect]
     Active Substance: ALCOHOL
  4. PALIPERIDONE [Suspect]
     Active Substance: PALIPERIDONE
  5. LORAZEPAM [Suspect]
     Active Substance: LORAZEPAM
  6. LITHIUM [Suspect]
     Active Substance: LITHIUM
  7. SERTRALINE [Suspect]
     Active Substance: SERTRALINE HYDROCHLORIDE
  8. QUETIAPINE [Suspect]
     Active Substance: QUETIAPINE

REACTIONS (1)
  - Toxicity to various agents [Fatal]
